FAERS Safety Report 23394257 (Version 1)
Quarter: 2024Q1

REPORT INFORMATION
  Report Type: Report from Study
  Country: US (occurrence: US)
  Receive Date: 20240111
  Receipt Date: 20240111
  Transmission Date: 20240410
  Serious: Yes (Other)
  Sender: FDA-Public Use
  Company Number: US-SEATTLE GENETICS-2024SGN00150

PATIENT
  Sex: Female

DRUGS (1)
  1. TUCATINIB [Suspect]
     Active Substance: TUCATINIB
     Indication: Breast cancer female
     Route: 065

REACTIONS (12)
  - Muscular weakness [Unknown]
  - Neuropathy peripheral [Unknown]
  - Memory impairment [Unknown]
  - Poor peripheral circulation [Unknown]
  - Pain in extremity [Unknown]
  - Paraesthesia [Unknown]
  - Tinnitus [Unknown]
  - Frequent bowel movements [Unknown]
  - Hypoaesthesia [Unknown]
  - Boredom [Unknown]
  - Psychiatric symptom [Unknown]
  - Back pain [Unknown]
